FAERS Safety Report 5400556-6 (Version None)
Quarter: 2007Q3

REPORT INFORMATION
  Report Type: 
  Country: None (occurrence: None)
  Receive Date: 20070730
  Receipt Date: 20070725
  Transmission Date: 20080115
  Serious: Yes (Death, Disabling, Other)
  Sender: FDA-Public Use
  Company Number: PHNU2007DE02646

PATIENT
  Age: 80 Year
  Sex: Female

DRUGS (12)
  1. BONDRONAT [Suspect]
     Indication: MULTIPLE MYELOMA
     Dosage: 2 MG, UNK
     Route: 065
     Dates: start: 20060601
  2. TORSEMIDE [Concomitant]
     Dosage: 5 MG, QD
     Route: 065
  3. CAPTOHEXAL [Concomitant]
     Dosage: 12.5 MG, UNK
     Route: 065
  4. SPASMEX [Concomitant]
     Route: 065
  5. NEXIUM [Concomitant]
     Dosage: 20 MG, QD
     Route: 065
  6. IDEOS [Concomitant]
     Route: 065
  7. METOPROLOL SUCCINATE [Concomitant]
     Route: 065
  8. MELPHALAN [Concomitant]
     Indication: CHEMOTHERAPY
     Route: 065
     Dates: start: 20040801, end: 20050201
  9. DEXAMETHASONE [Concomitant]
     Route: 065
     Dates: start: 20060701
  10. CHLORHEXIDINE GLUCONATE [Concomitant]
     Indication: OSTEONECROSIS
     Route: 065
  11. BEPANTHEN                               /AUT/ [Concomitant]
     Indication: OSTEOPOROSIS
     Route: 065
  12. ZOMETA [Suspect]
     Indication: MULTIPLE MYELOMA
     Route: 065
     Dates: start: 20040101, end: 20060601

REACTIONS (5)
  - APHTHOUS STOMATITIS [None]
  - BONE DISORDER [None]
  - OSTEONECROSIS [None]
  - PLASMACYTOMA [None]
  - WOUND TREATMENT [None]
